FAERS Safety Report 7071349-1 (Version None)
Quarter: 2010Q4

REPORT INFORMATION
  Report Type: 
  Country: None (occurrence: None)
  Receive Date: 20101029
  Receipt Date: 20101020
  Transmission Date: 20110411
  Serious: Yes (Other)
  Sender: FDA-Public Use
  Company Number: ZA-JNJFOC-20101003006

PATIENT
  Sex: Male

DRUGS (19)
  1. DURAGESIC-100 [Suspect]
     Indication: PAIN
     Route: 062
  2. DURAGESIC-100 [Suspect]
     Route: 062
  3. DURAGESIC-100 [Suspect]
     Indication: NEUROPATHY PERIPHERAL
     Route: 062
  4. DURAGESIC-100 [Suspect]
     Route: 062
  5. LYRICA [Concomitant]
     Indication: PAIN IN EXTREMITY
     Route: 065
  6. CYMBALTA [Concomitant]
     Indication: PAIN IN EXTREMITY
     Dosage: 1 IN THE MORNING
     Route: 065
  7. TREPILINE [Concomitant]
     Indication: PAIN IN EXTREMITY
     Dosage: 1 IN THE EVENING
     Route: 065
  8. PANADO [Concomitant]
     Indication: PAIN IN EXTREMITY
     Dosage: 2 PANADO FOR WORSE PAIN
     Route: 065
  9. DISPRIN [Concomitant]
     Indication: HYPERTENSION
     Dosage: DRINKS 1/2 DISPIRIN IN THE MORNING
     Route: 065
  10. AMLODIPINE MALEATE [Concomitant]
     Indication: HYPERTENSION
     Dosage: 1 IN THE MORNING
     Route: 065
  11. ISMO 20 [Concomitant]
     Indication: HYPERTENSION
     Route: 065
  12. ATACAND [Concomitant]
     Indication: HYPERTENSION
     Dosage: 1 IN THE MORNING
     Route: 065
  13. ZOCOR [Concomitant]
     Indication: BLOOD CHOLESTEROL
     Dosage: 1 IN THE EVENING
     Route: 065
  14. PLENISH-K [Concomitant]
     Indication: OEDEMA PERIPHERAL
     Route: 065
  15. PURESIS [Concomitant]
     Indication: OEDEMA PERIPHERAL
     Dosage: 1 AT MIDDAY
     Route: 065
  16. PROCYDIN [Concomitant]
     Dosage: 2 PILLS IN THE MORNING
     Route: 065
  17. VITAMIN B6 [Concomitant]
     Route: 065
  18. GLUCOPHAGE [Concomitant]
     Route: 065
  19. ZIAK [Concomitant]
     Route: 065

REACTIONS (8)
  - FATIGUE [None]
  - HYPOTENSION [None]
  - LOSS OF LIBIDO [None]
  - MEMORY IMPAIRMENT [None]
  - OEDEMA PERIPHERAL [None]
  - PRODUCT QUALITY ISSUE [None]
  - SEXUAL DYSFUNCTION [None]
  - WRONG TECHNIQUE IN DRUG USAGE PROCESS [None]
